FAERS Safety Report 5974310-0 (Version None)
Quarter: 2008Q4

REPORT INFORMATION
  Report Type: 
  Country: None (occurrence: None)
  Receive Date: 20081201
  Receipt Date: 20081016
  Transmission Date: 20090506
  Serious: Yes (Hospitalization)
  Sender: FDA-Public Use
  Company Number: JP-PFIZER INC-2008087435

PATIENT
  Age: 65 Year
  Sex: Female

DRUGS (6)
  1. CARDENALIN [Suspect]
     Indication: HYPERTENSION
     Dosage: DAILY DOSE:2MG
     Route: 048
  2. ASPENON [Suspect]
     Indication: ATRIAL FIBRILLATION
     Dosage: DAILY DOSE:40MG
     Route: 048
     Dates: start: 20080725, end: 20080821
  3. RIZE [Suspect]
     Indication: ANXIETY DISORDER
     Dosage: DAILY DOSE:5MG
     Route: 048
  4. CONIEL [Suspect]
     Indication: HYPERTENSION
     Dosage: DAILY DOSE:4MG
     Route: 048
  5. VASOLAN [Suspect]
     Indication: ATRIAL FIBRILLATION
     Dosage: DAILY DOSE:12MG
     Route: 048
  6. TAKEPRON [Suspect]
     Dosage: DAILY DOSE:15MG
     Route: 048
     Dates: start: 20080207

REACTIONS (1)
  - HEPATIC FUNCTION ABNORMAL [None]
